FAERS Safety Report 5707459-8 (Version None)
Quarter: 2008Q2

REPORT INFORMATION
  Report Type: 
  Country: None (occurrence: None)
  Receive Date: 20080416
  Receipt Date: 20080408
  Transmission Date: 20081010
  Serious: Yes (Hospitalization, Other)
  Sender: FDA-Public Use
  Company Number: US-GENENTECH-257590

PATIENT
  Sex: Female

DRUGS (11)
  1. BEVACIZUMAB [Suspect]
     Indication: OVARIAN CANCER
     Dosage: 15 MG/KG, Q21D
     Route: 042
     Dates: start: 20070718
  2. TAXOL [Concomitant]
     Indication: OVARIAN CANCER
  3. CISPLATIN [Concomitant]
     Indication: OVARIAN CANCER
  4. ACETAMINOFEN [Concomitant]
     Indication: DRUG USE FOR UNKNOWN INDICATION
     Dosage: 500 MG, UNK
     Dates: start: 20070718
  5. PREVACID [Concomitant]
     Dosage: 1 TABLET, UNK
     Dates: start: 20070718
  6. AZITHROMYCIN [Concomitant]
     Indication: DRUG USE FOR UNKNOWN INDICATION
     Dates: start: 20080305
  7. FERROUS GLUCONATE [Concomitant]
     Indication: DRUG USE FOR UNKNOWN INDICATION
     Dosage: 56 MG, UNK
     Dates: start: 20071121
  8. LANSOPRAZOLE [Concomitant]
     Indication: DRUG USE FOR UNKNOWN INDICATION
     Dosage: 60 MG, UNK
     Dates: start: 20070611
  9. MAGNESIUM OXIDE [Concomitant]
     Indication: DRUG USE FOR UNKNOWN INDICATION
     Dosage: 400 MG, UNK
     Dates: start: 20071121
  10. M.V.I. [Concomitant]
     Indication: DRUG USE FOR UNKNOWN INDICATION
     Dosage: 1 TABLET, UNK
     Dates: start: 20071121
  11. VITAMIN B6 [Concomitant]

REACTIONS (1)
  - HERNIA OBSTRUCTIVE [None]
